FAERS Safety Report 5642845-6 (Version None)
Quarter: 2008Q1

REPORT INFORMATION
  Report Type: 
  Country: None (occurrence: None)
  Receive Date: 20080228
  Receipt Date: 20080220
  Transmission Date: 20080703
  Serious: Yes (Other)
  Sender: FDA-Public Use
  Company Number: PHHY2008AR02041

PATIENT
  Age: 60 Year
  Sex: Female

DRUGS (1)
  1. DIOVAN TRIPLE [Suspect]
     Indication: HYPERTENSION
     Dosage: 2 /DAY
     Dates: start: 20080201, end: 20080206

REACTIONS (2)
  - FACIAL PALSY [None]
  - TONGUE DISORDER [None]
